FAERS Safety Report 14829254 (Version 1)
Quarter: 2020Q3

REPORT INFORMATION
  Report Type: Report from Study
  Country: CA (occurrence: CA)
  Receive Date: 20180430
  Receipt Date: 20180430
  Transmission Date: 20201105
  Serious: Yes (Other)
  Sender: FDA-Public Use
  Company Number: CA-ASTRAZENECA-2018SE54350

PATIENT
  Age: 59 Year
  Sex: Female

DRUGS (18)
  1. OXYCOCET [Concomitant]
     Active Substance: ACETAMINOPHEN\OXYCODONE HYDROCHLORIDE
     Dates: start: 20171128
  2. FENTANYL. [Concomitant]
     Active Substance: FENTANYL
     Dates: start: 20180118
  3. DURVALUMAB. [Suspect]
     Active Substance: DURVALUMAB
     Indication: NEOPLASM
     Route: 042
  4. DURVALUMAB. [Suspect]
     Active Substance: DURVALUMAB
     Indication: NEOPLASM
     Route: 042
     Dates: start: 20171102
  5. GRAVOL [Concomitant]
     Active Substance: DIMENHYDRINATE
     Dates: start: 20171102
  6. TREMELIMUMAB. [Suspect]
     Active Substance: TREMELIMUMAB
     Indication: NEOPLASM
     Route: 042
     Dates: start: 20171102
  7. ONDANSETRON [Concomitant]
     Active Substance: ONDANSETRON
     Dates: start: 20180220
  8. SYNTHROID [Concomitant]
     Active Substance: LEVOTHYROXINE SODIUM
     Dates: start: 20180104
  9. NAPROSYN [Concomitant]
     Active Substance: NAPROXEN
     Dates: start: 20180116
  10. SENOKOT [Concomitant]
     Active Substance: SENNOSIDES
     Dates: start: 20171015
  11. BACLOFEN. [Concomitant]
     Active Substance: BACLOFEN
     Dates: start: 20171031
  12. PANTOPRAZOLE [Concomitant]
     Active Substance: PANTOPRAZOLE
     Dates: start: 20180221
  13. HYDROMORPHONE [Concomitant]
     Active Substance: HYDROMORPHONE
     Dates: start: 20171013
  14. DOCUSATE SODIUM. [Concomitant]
     Active Substance: DOCUSATE SODIUM
     Dates: start: 20171015
  15. RANITIDINE. [Concomitant]
     Active Substance: RANITIDINE
     Dates: start: 20171129
  16. HYBRID CANNABIS [Concomitant]
     Dates: start: 20171225
  17. ENO [Concomitant]
     Active Substance: ALUMINUM HYDROXIDE\DIMETHICONE\MAGNESIUM HYDROXIDE
     Dates: start: 20171027
  18. CELEBREX [Concomitant]
     Active Substance: CELECOXIB
     Dates: start: 20180321

REACTIONS (1)
  - Arthralgia [Unknown]

NARRATIVE: CASE EVENT DATE: 20180417
